FAERS Safety Report 7059090-2 (Version None)
Quarter: 2010Q4

REPORT INFORMATION
  Report Type: 
  Country: None (occurrence: None)
  Receive Date: 20101025
  Receipt Date: 20101013
  Transmission Date: 20110411
  Serious: No
  Sender: FDA-Public Use
  Company Number: US-BIOGENIDEC-2010BI032354

PATIENT
  Age: 51 Year
  Sex: Female

DRUGS (1)
  1. TYSABRI [Suspect]
     Indication: MULTIPLE SCLEROSIS
     Route: 042
     Dates: start: 20090319

REACTIONS (8)
  - DRUG INEFFECTIVE [None]
  - DYSSTASIA [None]
  - FALL [None]
  - GAIT DISTURBANCE [None]
  - LOSS OF CONTROL OF LEGS [None]
  - MOBILITY DECREASED [None]
  - MUSCULAR WEAKNESS [None]
  - NUCLEAR MAGNETIC RESONANCE IMAGING ABNORMAL [None]
